FAERS Safety Report 24436285 (Version 1)
Quarter: 2024Q4

REPORT INFORMATION
  Report Type: Report from Study
  Country: US (occurrence: US)
  Receive Date: 20241015
  Receipt Date: 20241015
  Transmission Date: 20250115
  Serious: No
  Sender: ACADIA PHARMACEUTICALS
  Company Number: US-ACADIA PHARMACEUTICALS INC.-ACA-2024-PIM-005902

PATIENT
  Age: 73 Year
  Sex: Male

DRUGS (7)
  1. NUPLAZID [Suspect]
     Active Substance: PIMAVANSERIN TARTRATE
     Indication: Psychotic disorder due to a general medical condition
     Dosage: 34 MILLIGRAM, QD
     Route: 048
     Dates: start: 20240514
  2. NUPLAZID [Suspect]
     Active Substance: PIMAVANSERIN TARTRATE
     Indication: Delusion
  3. BUSPIRONE [Concomitant]
     Active Substance: BUSPIRONE HYDROCHLORIDE
  4. RIVASTIGMINE [Concomitant]
     Active Substance: RIVASTIGMINE
  5. SIMVASTATIN [Concomitant]
     Active Substance: SIMVASTATIN
  6. MELATONIN [Concomitant]
     Active Substance: MELATONIN
  7. VITAMINS NOS [Concomitant]
     Active Substance: VITAMINS

REACTIONS (1)
  - Off label use [Unknown]

NARRATIVE: CASE EVENT DATE: 20240514
